FAERS Safety Report 11145853 (Version 4)
Quarter: 2015Q3

REPORT INFORMATION
  Report Type: Spontaneous
  Country: US (occurrence: US)
  Receive Date: 20150528
  Receipt Date: 20150710
  Transmission Date: 20151125
  Serious: No
  Sender: FDA-Public Use
  Company Number: US-PFIZER INC-2015181530

PATIENT
  Age: 65 Year
  Sex: Female
  Weight: 83 kg

DRUGS (3)
  1. ENALAPRIL [Concomitant]
     Active Substance: ENALAPRIL
     Dosage: 5 MG, UNK
  2. METOPROLOL [Concomitant]
     Active Substance: METOPROLOL
  3. LEVOXYL [Suspect]
     Active Substance: LEVOTHYROXINE SODIUM
     Indication: HYPOTHYROIDISM
     Dosage: 125 ?G, 1X/DAY
     Route: 048
     Dates: start: 20150513

REACTIONS (17)
  - Pharyngeal oedema [Unknown]
  - Arthralgia [Unknown]
  - Joint swelling [Unknown]
  - Asthenia [Unknown]
  - Poor quality sleep [Unknown]
  - Thirst [Unknown]
  - Crying [Unknown]
  - Skin fragility [Unknown]
  - Wrong technique in product usage process [Unknown]
  - Oropharyngeal pain [Unknown]
  - Dry throat [Unknown]
  - Malaise [Unknown]
  - Feeling jittery [Unknown]
  - Gait disturbance [Unknown]
  - Depression [Unknown]
  - Dysphagia [Unknown]
  - Product quality issue [Unknown]
